FAERS Safety Report 11319295 (Version 1)
Quarter: 2015Q3

REPORT INFORMATION
  Report Type: Spontaneous
  Country: US (occurrence: None)
  Receive Date: 20150727
  Receipt Date: 20150727
  Transmission Date: 20151125
  Serious: No
  Sender: FDA-Public Use
  Company Number: None

PATIENT
  Age: 48 Year
  Sex: Male
  Weight: 99.79 kg

DRUGS (3)
  1. NORCO [Concomitant]
     Active Substance: ACETAMINOPHEN\HYDROCODONE BITARTRATE
  2. GABAPENTIN. [Suspect]
     Active Substance: GABAPENTIN
     Indication: NEURALGIA
     Dosage: TAKEN BY MOUTH
     Dates: start: 20150509, end: 20150725
  3. GABAPENTIN. [Suspect]
     Active Substance: GABAPENTIN
     Indication: BACK DISORDER
     Dosage: TAKEN BY MOUTH
     Dates: start: 20150509, end: 20150725

REACTIONS (10)
  - Headache [None]
  - Chest pain [None]
  - Intentional product use issue [None]
  - Somnolence [None]
  - Nausea [None]
  - Rash [None]
  - Erectile dysfunction [None]
  - Pruritus [None]
  - Irritability [None]
  - Loss of libido [None]

NARRATIVE: CASE EVENT DATE: 20150725
